FAERS Safety Report 9434676 (Version 3)
Quarter: 2013Q4

REPORT INFORMATION
  Report Type: Report from Study
  Country: US (occurrence: US)
  Receive Date: 20130801
  Receipt Date: 20131029
  Transmission Date: 20140711
  Serious: Yes (Hospitalization)
  Sender: FDA-Public Use
  Company Number: US-NOVOPROD-384060

PATIENT
  Age: 11 Year
  Sex: Male
  Weight: 28.6 kg

DRUGS (1)
  1. NORDITROPIN FLEXPRO 10 MG/ML [Suspect]
     Indication: GROWTH RETARDATION
     Dosage: 0.28 TO 0.34 MG/KG PER WEEK, HIGHEST DOSE OF 1.3 MG DAILY
     Route: 058
     Dates: start: 201209, end: 20130718

REACTIONS (1)
  - Hepatoblastoma [Not Recovered/Not Resolved]
